FAERS Safety Report 21592053 (Version 2)
Quarter: 2023Q1

REPORT INFORMATION
  Report Type: Report from Study
  Country: US (occurrence: US)
  Receive Date: 20221114
  Receipt Date: 20230316
  Transmission Date: 20230418
  Serious: No
  Sender: FDA-Public Use
  Company Number: US-ABBVIE-4198249

PATIENT
  Sex: Female

DRUGS (2)
  1. HUMIRA [Suspect]
     Active Substance: ADALIMUMAB
     Indication: Ankylosing spondylitis
     Dosage: CITRATE FREE?STRENGTH: 40 MG
     Route: 058
  2. prenizone [Concomitant]
     Indication: Product used for unknown indication

REACTIONS (3)
  - Arthralgia [Unknown]
  - Neck pain [Unknown]
  - Back pain [Unknown]
